FAERS Safety Report 6855965-5 (Version None)
Quarter: 2010Q3

REPORT INFORMATION
  Report Type: 
  Country: None (occurrence: None)
  Receive Date: 20100719
  Receipt Date: 20100715
  Transmission Date: 20110219
  Serious: Yes (Death)
  Sender: FDA-Public Use
  Company Number: US-ASTRAZENECA-2009SE09306

PATIENT
  Age: 912 Month
  Sex: Female

DRUGS (11)
  1. ARIMIDEX [Suspect]
     Indication: BREAST CANCER
     Route: 048
     Dates: start: 20060118
  2. ASPIRIN [Suspect]
     Route: 048
  3. NORVASC [Suspect]
     Route: 048
  4. GLIBENCLAMIDE [Suspect]
     Route: 048
  5. METFORMIN HCL [Suspect]
     Route: 065
  6. HYDROCHLOROTHIAZIDE [Suspect]
     Route: 048
  7. CALCIUM WITH VITAMIN D [Suspect]
     Indication: OSTEOPOROSIS
     Route: 048
  8. COZAAR [Suspect]
     Route: 065
  9. SYNTHROID [Suspect]
     Route: 065
  10. BONIVA [Suspect]
     Indication: OSTEOPOROSIS
     Route: 065
     Dates: start: 20060103
  11. MULTI-VITAMIN [Concomitant]

REACTIONS (2)
  - CARDIAC ARREST [None]
  - MYOCARDIAL INFARCTION [None]
